FAERS Safety Report 7095380-5 (Version None)
Quarter: 2010Q4

REPORT INFORMATION
  Report Type: 
  Country: None (occurrence: None)
  Receive Date: 20101111
  Receipt Date: 20101105
  Transmission Date: 20110411
  Serious: Yes (Death, Life-Threatening, Hospitalization, Other)
  Sender: FDA-Public Use
  Company Number: JP-CELGENEUS-087-21880-10101075

PATIENT
  Sex: Female

DRUGS (12)
  1. REVLIMID [Suspect]
     Indication: MULTIPLE MYELOMA
     Route: 048
     Dates: start: 20101005, end: 20101009
  2. LENADEX [Suspect]
     Indication: MULTIPLE MYELOMA
     Route: 048
     Dates: start: 20101005, end: 20101008
  3. NORVASC [Concomitant]
     Indication: HYPERTENSION
     Route: 048
     Dates: start: 20101005, end: 20101009
  4. RENIVACE [Concomitant]
     Indication: HYPERTENSION
     Route: 048
     Dates: start: 20101005, end: 20101009
  5. TAKEPRON [Concomitant]
     Route: 048
     Dates: start: 20101005, end: 20101009
  6. DIFLUCAN [Concomitant]
     Indication: PROPHYLAXIS
     Route: 048
     Dates: start: 20101005, end: 20101009
  7. ZOVIRAX [Concomitant]
     Indication: PROPHYLAXIS
     Route: 048
     Dates: start: 20101005, end: 20101009
  8. MAGMITT [Concomitant]
     Route: 048
     Dates: start: 20101005, end: 20101009
  9. MYSLEE [Concomitant]
     Route: 048
     Dates: start: 20101005, end: 20101008
  10. GABAPEN [Interacting]
     Route: 048
     Dates: start: 20101005, end: 20101009
  11. CALONAL [Concomitant]
     Route: 048
     Dates: start: 20101005, end: 20101009
  12. BAKTAR [Concomitant]
     Indication: PROPHYLAXIS
     Route: 048
     Dates: start: 20101005, end: 20101008

REACTIONS (6)
  - BONE MARROW FAILURE [None]
  - CARDIAC FAILURE [None]
  - NEUTROPENIA [None]
  - PNEUMONIA [None]
  - SEPSIS [None]
  - THROMBOCYTOPENIA [None]
